FAERS Safety Report 6226542-4 (Version None)
Quarter: 2009Q2

REPORT INFORMATION
  Report Type: 
  Country: None (occurrence: None)
  Receive Date: 20090612
  Receipt Date: 20090518
  Transmission Date: 20091009
  Serious: No
  Sender: FDA-Public Use
  Company Number: US-ABBOTT-09P-163-0574299-00

PATIENT
  Sex: Male
  Weight: 102.6 kg

DRUGS (20)
  1. HUMIRA [Suspect]
     Indication: PSORIASIS
     Dates: start: 20070101
  2. ZOCOR [Suspect]
     Indication: BLOOD CHOLESTEROL INCREASED
     Route: 048
     Dates: start: 20090101, end: 20090501
  3. COUMADIN [Concomitant]
     Indication: DRUG USE FOR UNKNOWN INDICATION
  4. COLESTID [Concomitant]
     Indication: BLOOD CHOLESTEROL INCREASED
  5. PRILOSEC [Concomitant]
     Indication: HIATUS HERNIA
  6. ASPIRIN [Concomitant]
     Indication: DRUG USE FOR UNKNOWN INDICATION
  7. LOPID [Concomitant]
     Indication: BLOOD TRIGLYCERIDES INCREASED
  8. MICARDIS [Concomitant]
     Indication: DRUG USE FOR UNKNOWN INDICATION
  9. FOLIC ACID [Concomitant]
     Indication: DRUG USE FOR UNKNOWN INDICATION
  10. ZINC [Concomitant]
     Indication: DRUG USE FOR UNKNOWN INDICATION
     Route: 048
  11. VITAMIN E [Concomitant]
     Indication: DRUG USE FOR UNKNOWN INDICATION
  12. ASCORBIC ACID [Concomitant]
     Indication: DRUG USE FOR UNKNOWN INDICATION
  13. MULTI-VITAMIN [Concomitant]
     Indication: DRUG USE FOR UNKNOWN INDICATION
  14. VITAMIN B-12 [Concomitant]
     Indication: DRUG USE FOR UNKNOWN INDICATION
  15. COQ10 [Concomitant]
     Indication: DRUG USE FOR UNKNOWN INDICATION
  16. GLUCOSAMINE [Concomitant]
     Indication: DRUG USE FOR UNKNOWN INDICATION
  17. TYLENOL (CAPLET) [Concomitant]
     Indication: MIGRAINE
     Dosage: AS REQUIRED
  18. VIAGRA [Concomitant]
     Indication: DRUG USE FOR UNKNOWN INDICATION
     Dosage: AS REQUIRED
  19. NAPROXEN [Concomitant]
     Indication: DRUG USE FOR UNKNOWN INDICATION
     Dosage: AS REQUIRED
  20. AFRIN [Concomitant]
     Indication: SINUSITIS
     Dosage: AS REQUIRED IN EVENING

REACTIONS (6)
  - EOSINOPHIL COUNT INCREASED [None]
  - INCREASED UPPER AIRWAY SECRETION [None]
  - MONOCYTE COUNT INCREASED [None]
  - MYALGIA [None]
  - PNEUMONIA PRIMARY ATYPICAL [None]
  - RASH MACULAR [None]
